FAERS Safety Report 5779851-7 (Version None)
Quarter: 2008Q2

REPORT INFORMATION
  Report Type: 
  Country: None (occurrence: None)
  Receive Date: 20080620
  Receipt Date: 20080603
  Transmission Date: 20081010
  Serious: No
  Sender: FDA-Public Use
  Company Number: US-BAYER-200820881NA

PATIENT
  Age: 41 Year
  Sex: Female
  Weight: 70 kg

DRUGS (2)
  1. MIRENA [Suspect]
     Indication: CONTRACEPTION
     Route: 015
     Dates: start: 20080417
  2. CYMBALTA [Concomitant]
     Indication: ANXIETY

REACTIONS (7)
  - ABDOMINAL PAIN [None]
  - BACK PAIN [None]
  - DIZZINESS [None]
  - FATIGUE [None]
  - MALAISE [None]
  - PROCEDURAL PAIN [None]
  - PYREXIA [None]
